FAERS Safety Report 10480552 (Version 1)
Quarter: 2014Q3

REPORT INFORMATION
  Report Type: Spontaneous
  Country: US (occurrence: None)
  Receive Date: 20140926
  Receipt Date: 20140926
  Transmission Date: 20150326
  Serious: No
  Sender: FDA-Public Use
  Company Number: None

PATIENT
  Age: 29 Year
  Sex: Female
  Weight: 63.5 kg

DRUGS (2)
  1. VIIBRYD [Suspect]
     Active Substance: VILAZODONE HYDROCHLORIDE
     Indication: DEPRESSION
     Dosage: 5-40 MGS, ONCE DAILY, TAKEN BY MOUTH
     Route: 048
     Dates: start: 20130410, end: 20140120
  2. VIIBRYD [Suspect]
     Active Substance: VILAZODONE HYDROCHLORIDE
     Indication: ANXIETY
     Dosage: 5-40 MGS, ONCE DAILY, TAKEN BY MOUTH
     Route: 048
     Dates: start: 20130410, end: 20140120

REACTIONS (2)
  - Paraesthesia [None]
  - Sleep disorder [None]
